FAERS Safety Report 6677133-2 (Version None)
Quarter: 2010Q2

REPORT INFORMATION
  Report Type: 
  Country: None (occurrence: None)
  Receive Date: 20100408
  Receipt Date: 20100325
  Transmission Date: 20101027
  Serious: Yes (Death, Life-Threatening, Hospitalization)
  Sender: FDA-Public Use
  Company Number: 009381

PATIENT
  Sex: Female

DRUGS (4)
  1. KEPPRA [Suspect]
     Dosage: (500  MG BID INTRAVENOUS (NOT OTHERWISE SPECIFIED)
     Route: 042
     Dates: start: 20100203, end: 20100304
  2. CLAFORAN [Suspect]
     Indication: BRAIN ABSCESS
     Dosage: (2 G 6X/DAY INTRAVENOUS (NOT OTHERWISE SPECIFIED)
     Route: 042
     Dates: start: 20100204, end: 20100305
  3. FLAGYL [Suspect]
     Indication: BRAIN ABSCESS
     Dosage: (500 MG TID INTRAVENOUS (NOT OTHERWISE SPECIFIED))
     Route: 042
     Dates: start: 20100203, end: 20100305
  4. VANCOMYCIN [Concomitant]

REACTIONS (12)
  - ABNORMAL BEHAVIOUR [None]
  - AGRANULOCYTOSIS [None]
  - BRAIN ABSCESS [None]
  - CNS VENTRICULITIS [None]
  - DISTURBANCE IN ATTENTION [None]
  - HEMIPLEGIA [None]
  - HYPERPLASIA [None]
  - LEUKOPENIA [None]
  - NAUSEA [None]
  - NEUTROPENIA [None]
  - OBSTRUCTIVE AIRWAYS DISORDER [None]
  - VOMITING [None]
